FAERS Safety Report 19587606 (Version 2)
Quarter: 2021Q3

REPORT INFORMATION
  Report Type: Report from Study
  Country: US (occurrence: US)
  Receive Date: 20210721
  Receipt Date: 20210729
  Transmission Date: 20211014
  Serious: Yes (Hospitalization, Other)
  Sender: FDA-Public Use
  Company Number: US-GILEAD-2021-0541097

PATIENT
  Age: 36 Year
  Sex: Female

DRUGS (14)
  1. PULMOZYME [Concomitant]
     Active Substance: DORNASE ALFA
  2. KITABIS PAK [Concomitant]
     Active Substance: TOBRAMYCIN
  3. AZTREONAM LYSINE [Suspect]
     Active Substance: AZTREONAM LYSINE
     Indication: CYSTIC FIBROSIS LUNG
     Dosage: 75 MG, TID FOR 28 DAYS ON THEN 28 DAYS OFF
     Route: 055
  4. MVW COMPLETE FORMULATION PROBIOTIC [Concomitant]
  5. ALBUTEROL SULFATE HFA [Concomitant]
     Active Substance: ALBUTEROL SULFATE
  6. PRISTIQ EXTENDED?RELEASE [Concomitant]
     Active Substance: DESVENLAFAXINE SUCCINATE
  7. CREON [Concomitant]
     Active Substance: PANCRELIPASE AMYLASE\PANCRELIPASE LIPASE\PANCRELIPASE PROTEASE
  8. ZYRTEC [Concomitant]
     Active Substance: CETIRIZINE HYDROCHLORIDE
  9. SODIUM CHLORIDE. [Concomitant]
     Active Substance: SODIUM CHLORIDE
  10. TRIKAFTA [Concomitant]
     Active Substance: ELEXACAFTOR\IVACAFTOR\TEZACAFTOR
  11. SEREVENT DISKUS [Concomitant]
     Active Substance: SALMETEROL XINAFOATE
  12. TRAZODONE HYDROCHLORIDE. [Concomitant]
     Active Substance: TRAZODONE HYDROCHLORIDE
  13. TOBI [Concomitant]
     Active Substance: TOBRAMYCIN
  14. AZITHROMYCIN ANHYDROUS. [Concomitant]
     Active Substance: AZITHROMYCIN ANHYDROUS

REACTIONS (2)
  - Condition aggravated [Not Recovered/Not Resolved]
  - Pneumonia [Unknown]
